FAERS Safety Report 13583138 (Version 1)
Quarter: 2017Q2

REPORT INFORMATION
  Report Type: Spontaneous
  Country: GB (occurrence: GB)
  Receive Date: 20170525
  Receipt Date: 20170525
  Transmission Date: 20170830
  Serious: Yes (Other)
  Sender: FDA-Public Use
  Company Number: GB-TEVA-770269ACC

PATIENT
  Age: 79 Year
  Sex: Male
  Weight: 74.75 kg

DRUGS (12)
  1. DONEPEZIL. [Concomitant]
     Active Substance: DONEPEZIL
  2. WARFARIN [Concomitant]
     Active Substance: WARFARIN
  3. RISPERIDONE. [Suspect]
     Active Substance: RISPERIDONE
     Indication: AGGRESSION
     Dosage: .5 MILLIGRAM DAILY;
     Route: 048
  4. BISOPROLOL [Concomitant]
     Active Substance: BISOPROLOL
  5. MIRTAZAPINE. [Concomitant]
     Active Substance: MIRTAZAPINE
  6. ROSUVASTATIN. [Concomitant]
     Active Substance: ROSUVASTATIN
  7. LACTULOSE. [Concomitant]
     Active Substance: LACTULOSE
  8. ALLOPURINOL. [Concomitant]
     Active Substance: ALLOPURINOL
  9. RISPERIDONE. [Suspect]
     Active Substance: RISPERIDONE
     Indication: AGGRESSION
     Dosage: 1 MILLIGRAM DAILY;
     Route: 048
     Dates: start: 20170330, end: 20170425
  10. CANDESARTAN. [Concomitant]
     Active Substance: CANDESARTAN
  11. LORAZEPAM. [Concomitant]
     Active Substance: LORAZEPAM
  12. MELATONIN [Concomitant]
     Active Substance: MELATONIN

REACTIONS (1)
  - Pleurothotonus [Recovered/Resolved]

NARRATIVE: CASE EVENT DATE: 20170417
